FAERS Safety Report 7418505-8 (Version None)
Quarter: 2011Q2

REPORT INFORMATION
  Report Type: 
  Country: None (occurrence: None)
  Receive Date: 20110415
  Receipt Date: 20110404
  Transmission Date: 20111010
  Serious: Yes (Other)
  Sender: FDA-Public Use
  Company Number: TW-WATSON-2011-05194

PATIENT
  Age: 56 Year
  Sex: Female

DRUGS (2)
  1. METOCLOPRAMIDE HYDROCHLORIDE [Suspect]
     Indication: NAUSEA
     Dosage: 20 MG, DAILY
     Route: 048
     Dates: start: 20031121
  2. METOCLOPRAMIDE HYDROCHLORIDE [Suspect]
     Indication: VOMITING

REACTIONS (2)
  - CENTRAL NERVOUS SYSTEM LESION [None]
  - MOVEMENT DISORDER [None]
